FAERS Safety Report 8990865 (Version 1)
Quarter: 2012Q4

REPORT INFORMATION
  Report Type: 
  Country: TR (occurrence: TR)
  Receive Date: 20121231
  Receipt Date: 20121231
  Transmission Date: 20130627
  Serious: Yes (Other)
  Sender: FDA-Public Use
  Company Number: PHHY2012TR120877

PATIENT
  Sex: Female

DRUGS (1)
  1. SEBIVO [Suspect]
     Dosage: UNK UKN, UNK

REACTIONS (3)
  - Tachycardia [Unknown]
  - Dyspnoea [Unknown]
  - Mental disorder [Unknown]
